FAERS Safety Report 8448106-4 (Version None)
Quarter: 2012Q2

REPORT INFORMATION
  Report Type: 
  Country: None (occurrence: None)
  Receive Date: 20120619
  Receipt Date: 20120615
  Transmission Date: 20120825
  Serious: No
  Sender: FDA-Public Use
  Company Number: US-BAYER-2012-060331

PATIENT
  Age: 78 Year
  Sex: Female
  Weight: 77 kg

DRUGS (6)
  1. BLOOD PRESSURE MEDICATION (NOS) [Concomitant]
  2. WATER [Concomitant]
  3. BACLOFEN [Concomitant]
  4. ALEVE (CAPLET) [Suspect]
     Indication: BACK PAIN
     Dosage: 2 DF, BID
     Route: 048
     Dates: start: 20090101
  5. VICODIN [Concomitant]
  6. LIPITOR [Concomitant]

REACTIONS (1)
  - BACK PAIN [None]
